FAERS Safety Report 7742936-X (Version None)
Quarter: 2011Q3

REPORT INFORMATION
  Report Type: 
  Country: None (occurrence: None)
  Receive Date: 20110912
  Receipt Date: 20110901
  Transmission Date: 20111222
  Serious: Yes (Hospitalization)
  Sender: FDA-Public Use
  Company Number: FR-ELI_LILLY_AND_COMPANY-FR201107005128

PATIENT
  Age: 72 Year
  Sex: Male
  Weight: 85 kg

DRUGS (10)
  1. FORTEO [Suspect]
     Indication: OSTEOPOROTIC FRACTURE
     Dosage: 20 UG, QD
     Route: 058
     Dates: start: 20110417
  2. HYPERIUM [Concomitant]
  3. NEBIVOLOL HCL [Concomitant]
  4. FORTEO [Suspect]
     Dosage: 20 UG, QD
     Route: 058
  5. ASPIRIN [Concomitant]
  6. ATORVASTATIN CALCIUM [Concomitant]
  7. POTASSIUM CHLORIDE [Concomitant]
  8. FORTEO [Suspect]
     Dosage: 20 UG, QD
     Route: 058
  9. FORTEO [Suspect]
     Dosage: 20 UG, QD
     Route: 058
  10. PERINDOPRIL ERBUMINE [Concomitant]

REACTIONS (2)
  - ADENOMA BENIGN [None]
  - BLOOD CULTURE POSITIVE [None]
